FAERS Safety Report 13932225 (Version 8)
Quarter: 2019Q2

REPORT INFORMATION
  Report Type: Spontaneous
  Country: US (occurrence: US)
  Receive Date: 20170904
  Receipt Date: 20190425
  Transmission Date: 20190711
  Serious: Yes (Hospitalization, Other)
  Sender: FDA-Public Use
  Company Number: US-PFIZER INC-2017382226

PATIENT
  Age: 78 Year
  Sex: Female
  Weight: 63.95 kg

DRUGS (10)
  1. IBRANCE [Suspect]
     Active Substance: PALBOCICLIB
     Indication: BREAST CANCER METASTATIC
     Dosage: 125 MG, 1X/DAY
     Route: 048
     Dates: start: 201703
  2. VERAPAMIL [Concomitant]
     Active Substance: VERAPAMIL HYDROCHLORIDE
     Dosage: 240 MG, UNK
  3. BRILINTA [Concomitant]
     Active Substance: TICAGRELOR
     Indication: THROMBOSIS
     Dosage: 90 MG, 2X/DAY
  4. BRILINTA [Concomitant]
     Active Substance: TICAGRELOR
     Dosage: 90 MG, 1X/DAY
     Dates: start: 20181005
  5. CARVEDILOL. [Concomitant]
     Active Substance: CARVEDILOL
     Indication: BLOOD PRESSURE ABNORMAL
     Dosage: 125 MG, 2X/DAY
  6. IBRANCE [Suspect]
     Active Substance: PALBOCICLIB
     Dosage: 120 MG, CYCLIC (3 WEEKS ON AND OFF FOR 7 DAYS)
     Route: 048
     Dates: start: 201707
  7. IBRANCE [Suspect]
     Active Substance: PALBOCICLIB
     Dosage: 75 MG, CYCLIC, 1X/DAY [ONCE A DAY THREE WEEKS ON AND ONE WEEK OFF]
     Route: 048
  8. VERAPAMIL [Concomitant]
     Active Substance: VERAPAMIL HYDROCHLORIDE
     Indication: HYPERTENSION
     Dosage: 120 MG, 1X/DAY
     Route: 048
     Dates: start: 1994
  9. LETROZOLE. [Concomitant]
     Active Substance: LETROZOLE
     Indication: BREAST CANCER METASTATIC
     Dosage: 1 DF, 1X/DAY
     Route: 048
  10. IBRANCE [Suspect]
     Active Substance: PALBOCICLIB
     Dosage: 100 MG, 1X/DAY
     Route: 048
     Dates: start: 2017

REACTIONS (6)
  - Fall [Unknown]
  - Fatigue [Unknown]
  - Myocardial infarction [Recovered/Resolved]
  - Weight increased [Unknown]
  - Ankle fracture [Unknown]
  - Arterial occlusive disease [Unknown]

NARRATIVE: CASE EVENT DATE: 201706
